FAERS Safety Report 6917439-2 (Version None)
Quarter: 2010Q3

REPORT INFORMATION
  Report Type: 
  Country: None (occurrence: None)
  Receive Date: 20100810
  Receipt Date: 20100726
  Transmission Date: 20110219
  Serious: Yes (Other)
  Sender: FDA-Public Use
  Company Number: PHHY2010TZ52309

PATIENT
  Age: 17 Year
  Sex: Female

DRUGS (1)
  1. COARTEM [Suspect]
     Indication: MALARIA

REACTIONS (1)
  - PARAPLEGIA [None]
